FAERS Safety Report 11820554 (Version 3)
Quarter: 2018Q4

REPORT INFORMATION
  Report Type: Spontaneous
  Country: US (occurrence: US)
  Receive Date: 20151210
  Receipt Date: 20181120
  Transmission Date: 20190204
  Serious: No
  Sender: FDA-Public Use
  Company Number: US-JNJFOC-20150520565

PATIENT
  Sex: Male

DRUGS (17)
  1. SIMVASTATIN. [Concomitant]
     Active Substance: SIMVASTATIN
  2. VALACYCLOVIR [Concomitant]
     Active Substance: VALACYCLOVIR HYDROCHLORIDE
  3. IMBRUVICA [Suspect]
     Active Substance: IBRUTINIB
     Indication: CHRONIC LYMPHOCYTIC LEUKAEMIA
     Route: 048
     Dates: start: 20171110
  4. PRILOSEC [Concomitant]
     Active Substance: OMEPRAZOLE MAGNESIUM
  5. ACARBOSE. [Concomitant]
     Active Substance: ACARBOSE
  6. ATIVAN [Concomitant]
     Active Substance: LORAZEPAM
  7. IMBRUVICA [Suspect]
     Active Substance: IBRUTINIB
     Indication: CHRONIC LYMPHOCYTIC LEUKAEMIA
     Route: 048
     Dates: start: 20140508
  8. GLIPIZIDE. [Concomitant]
     Active Substance: GLIPIZIDE
  9. POTASSIUM [Concomitant]
     Active Substance: POTASSIUM
  10. GABAPENTIN. [Concomitant]
     Active Substance: GABAPENTIN
  11. MELATONIN [Concomitant]
     Active Substance: MELATONIN
  12. BENZONATATE. [Concomitant]
     Active Substance: BENZONATATE
  13. LUMIGAN [Concomitant]
     Active Substance: BIMATOPROST
  14. FLUTICASONE. [Concomitant]
     Active Substance: FLUTICASONE
  15. GLUCOSAMINE [Concomitant]
     Active Substance: GLUCOSAMINE
  16. FLOMAX [Concomitant]
     Active Substance: TAMSULOSIN HYDROCHLORIDE
  17. PLAVIX [Concomitant]
     Active Substance: CLOPIDOGREL BISULFATE

REACTIONS (3)
  - Onychoclasis [Unknown]
  - Stomatitis [Unknown]
  - Contusion [Unknown]
